FAERS Safety Report 18105363 (Version 5)
Quarter: 2020Q4

REPORT INFORMATION
  Report Type: Spontaneous
  Country: FR (occurrence: FR)
  Receive Date: 20200803
  Receipt Date: 20201015
  Transmission Date: 20210113
  Serious: Yes (Death, Life-Threatening, Hospitalization, Other)
  Sender: FDA-Public Use
  Company Number: FR-MYLANLABS-2020M1068137

PATIENT
  Age: 57 Year
  Sex: Male
  Weight: 59 kg

DRUGS (76)
  1. ZELITREX [Concomitant]
     Active Substance: VALACYCLOVIR HYDROCHLORIDE
     Indication: PRODUCT USED FOR UNKNOWN INDICATION
     Dosage: 500 MG, 1 DAY OUT OF 2 (EVEN DAYS)
     Route: 065
  2. ZELITREX [Concomitant]
     Active Substance: VALACYCLOVIR HYDROCHLORIDE
     Dosage: UNK
     Route: 065
  3. TAVANIC [Concomitant]
     Active Substance: LEVOFLOXACIN
     Dosage: 250 MG, 1 DAY OUT OF 2, ODD DAYS
     Route: 065
  4. AMLOR [Concomitant]
     Active Substance: AMLODIPINE BESYLATE
     Indication: PRODUCT USED FOR UNKNOWN INDICATION
     Dosage: 10 MG, QD (IN THE MORNING)
     Route: 065
  5. APROVEL [Concomitant]
     Active Substance: IRBESARTAN
     Indication: PRODUCT USED FOR UNKNOWN INDICATION
     Dosage: 75 MG, QD 1 TABLET IN THE MORNING
     Route: 065
  6. APROVEL [Concomitant]
     Active Substance: IRBESARTAN
     Dosage: 75 MG, UNK
     Route: 065
  7. BINOCRIT [Concomitant]
     Active Substance: ERYTHROPOIETIN
     Dosage: 3000 OT, UNK
     Route: 065
  8. REVLIMID [Suspect]
     Active Substance: LENALIDOMIDE
     Dosage: 15 MILLIGRAM
     Route: 065
     Dates: end: 20180504
  9. CYCLOPHOSPHAMIDE. [Suspect]
     Active Substance: CYCLOPHOSPHAMIDE
     Indication: PLASMA CELL MYELOMA
     Dosage: 250 MILLIGRAM (250 MG (5 TABLETS) AT 12 PM AND 7 PM ON FRIDAY THEN 10 TABLETS)
     Route: 065
  10. AMOXICILLIN. [Concomitant]
     Active Substance: AMOXICILLIN
     Indication: PRODUCT USED FOR UNKNOWN INDICATION
     Dosage: 500 MG, QD
     Route: 065
  11. SODIUM HYDROGEN CARBONATE [Concomitant]
     Active Substance: SODIUM BICARBONATE
     Dosage: 9 GRAM, QD (3 G, TID)
     Route: 065
  12. SODIUM HYDROGEN CARBONATE [Concomitant]
     Active Substance: SODIUM BICARBONATE
     Dosage: 3 GRAM, QD (1 G, TID)
     Route: 065
  13. TAVANIC [Concomitant]
     Active Substance: LEVOFLOXACIN
     Dosage: 250 MILLIGRAM 1 DAY OUT OF 2, ODD DAYS
     Route: 065
  14. HYDROCORTISONE. [Concomitant]
     Active Substance: HYDROCORTISONE
     Dosage: 20 MILLIGRAM, QD
     Route: 065
  15. HYDROCORTISONE. [Concomitant]
     Active Substance: HYDROCORTISONE
     Dosage: UNK, BID
     Route: 065
     Dates: start: 2017
  16. CODEINE PHOSPHATE [Concomitant]
     Active Substance: CODEINE PHOSPHATE
     Indication: PRODUCT USED FOR UNKNOWN INDICATION
     Dosage: 2.5 MILLIGRAM
     Route: 065
  17. ORACILLINE                         /00001801/ [Concomitant]
     Active Substance: PENICILLIN V
     Indication: PRODUCT USED FOR UNKNOWN INDICATION
     Dosage: UNK
  18. TRIATEC                            /00885601/ [Concomitant]
     Active Substance: RAMIPRIL
     Indication: PRODUCT USED FOR UNKNOWN INDICATION
     Dosage: 2.5 MILLIGRAM, QD (1.25 MG, BID IN THE MORNING AND AT NIGHT)
     Route: 065
  19. BINOCRIT [Concomitant]
     Active Substance: ERYTHROPOIETIN
     Dosage: UNK
     Route: 065
  20. CARFILZOMIB [Suspect]
     Active Substance: CARFILZOMIB
     Indication: PLASMA CELL MYELOMA
     Dosage: 56 MILLIGRAM/SQ. METER
     Route: 065
  21. CARFILZOMIB [Suspect]
     Active Substance: CARFILZOMIB
     Dosage: 45 MILLIGRAM/SQ. METER
     Route: 065
  22. CARFILZOMIB [Suspect]
     Active Substance: CARFILZOMIB
     Dosage: 112 MG, ON DAYS 1, 2, 8, 9, 15 AND 16
     Route: 065
  23. IXAZOMIB [Suspect]
     Active Substance: IXAZOMIB
     Indication: PLASMA CELL MYELOMA
     Dosage: 3 MILLIGRAM
     Route: 065
  24. IXAZOMIB [Suspect]
     Active Substance: IXAZOMIB
     Dosage: UNK
     Route: 065
  25. TAVANIC [Concomitant]
     Active Substance: LEVOFLOXACIN
     Indication: ANTIBIOTIC PROPHYLAXIS
     Dosage: 1000 MG, UNK
     Route: 065
  26. LANSOPRAZOLE. [Concomitant]
     Active Substance: LANSOPRAZOLE
     Dosage: UNK, QD (15 UNK, QD)
     Route: 065
  27. VALACICLOVIR [Concomitant]
     Active Substance: VALACYCLOVIR HYDROCHLORIDE
     Indication: PRODUCT USED FOR UNKNOWN INDICATION
     Dosage: 500 MILLIGRAM (500 MG, IN THE MORNING OF EVEN DAYS)
     Route: 065
  28. CALCIDIA [Concomitant]
     Active Substance: CALCIUM CARBONATE
     Indication: PRODUCT USED FOR UNKNOWN INDICATION
     Dosage: 1 DOSAGE FORM, QD
     Route: 065
  29. SODIUM BICARBONATE. [Concomitant]
     Active Substance: SODIUM BICARBONATE
     Dosage: 1 GRAM, QID
     Route: 065
  30. LOVENOX [Concomitant]
     Active Substance: ENOXAPARIN SODIUM
     Indication: PRODUCT USED FOR UNKNOWN INDICATION
     Dosage: UNK, QD
     Route: 065
  31. REVLIMID [Suspect]
     Active Substance: LENALIDOMIDE
     Dosage: 10 MILLIGRAM
     Route: 065
     Dates: start: 20180425
  32. REVLIMID [Suspect]
     Active Substance: LENALIDOMIDE
     Dosage: 5 MILLIGRAM
     Route: 065
     Dates: start: 20180608
  33. PANOBINOSTAT [Suspect]
     Active Substance: PANOBINOSTAT
     Indication: PLASMA CELL MYELOMA
     Dosage: UNK
     Route: 065
  34. BICARBONATE [Concomitant]
     Active Substance: SODIUM BICARBONATE
     Dosage: 3 OT, TID
  35. TAVANIC [Concomitant]
     Active Substance: LEVOFLOXACIN
     Dosage: 1000 MG, (IN MORNING AND IN NIGHT)
     Route: 065
     Dates: start: 20170823
  36. HYDROCORTISONE. [Concomitant]
     Active Substance: HYDROCORTISONE
     Indication: PRODUCT USED FOR UNKNOWN INDICATION
     Dosage: 25 MILLIGRAM
     Route: 065
  37. TOPALGIC                           /00599202/ [Concomitant]
     Active Substance: TRAMADOL HYDROCHLORIDE
     Indication: PAIN
     Dosage: 4 DOSAGE FORM, QD (50 MG, X 4/DAY IF IN PAIN)
     Route: 065
  38. CALCIDIA [Concomitant]
     Active Substance: CALCIUM CARBONATE
     Dosage: QD (1-0-0)
     Route: 065
  39. DOLIPRANE [Concomitant]
     Active Substance: ACETAMINOPHEN
     Indication: PRODUCT USED FOR UNKNOWN INDICATION
     Dosage: 1 GRAM (1 G, 3/DAY IF IN PAIN)
  40. SODIUM BICARBONATE. [Concomitant]
     Active Substance: SODIUM BICARBONATE
     Dosage: 1 GRAM, TID
     Route: 065
  41. SODIUM BICARBONATE. [Concomitant]
     Active Substance: SODIUM BICARBONATE
     Dosage: 9 GRAM, QD (3 G, TID)
     Route: 065
  42. FUROSEMIDE. [Concomitant]
     Active Substance: FUROSEMIDE
     Indication: PRODUCT USED FOR UNKNOWN INDICATION
     Dosage: UNK
     Route: 065
  43. LOVENOX [Concomitant]
     Active Substance: ENOXAPARIN SODIUM
     Dosage: 0.2 OT, QD
     Route: 065
  44. CARFILZOMIB [Suspect]
     Active Substance: CARFILZOMIB
     Dosage: UNK
     Route: 065
     Dates: start: 20180319, end: 20190330
  45. AMLODIPINE [Concomitant]
     Active Substance: AMLODIPINE BESYLATE
     Indication: PRODUCT USED FOR UNKNOWN INDICATION
     Dosage: 5 MG, QD (1-0-0)
     Route: 065
  46. BICARBONATE [Concomitant]
     Active Substance: SODIUM BICARBONATE
     Indication: PRODUCT USED FOR UNKNOWN INDICATION
     Dosage: 4 GRAM
  47. BICARBONATE [Concomitant]
     Active Substance: SODIUM BICARBONATE
     Dosage: 3 MILLIGRAM
     Route: 065
  48. CEFTRIAXONE. [Concomitant]
     Active Substance: CEFTRIAXONE
     Indication: PRODUCT USED FOR UNKNOWN INDICATION
     Dosage: 2 GRAM, QD (2 G, QD)
     Route: 042
     Dates: start: 20170822, end: 20170822
  49. SODIUM HYDROGEN CARBONATE [Concomitant]
     Active Substance: SODIUM BICARBONATE
     Indication: PRODUCT USED FOR UNKNOWN INDICATION
     Dosage: 3 MILLIGRAM, QD
  50. HYDROCORTISONE. [Concomitant]
     Active Substance: HYDROCORTISONE
     Dosage: 10 MILLIGRAM
     Route: 065
  51. LANTUS [Concomitant]
     Active Substance: INSULIN GLARGINE
     Indication: PRODUCT USED FOR UNKNOWN INDICATION
     Dosage: 40 INTERNATIONAL UNIT, QD (40 IU, QD (AT NIGHT))
     Route: 058
  52. LANSOPRAZOLE. [Concomitant]
     Active Substance: LANSOPRAZOLE
     Indication: PRODUCT USED FOR UNKNOWN INDICATION
     Dosage: 15 MG, QD (AT NIGHT)
     Route: 065
  53. DEXAMETHASONE. [Suspect]
     Active Substance: DEXAMETHASONE
     Indication: PLASMA CELL MYELOMA
     Dosage: UNK
     Route: 065
  54. SODIUM HYDROGEN CARBONATE [Concomitant]
     Active Substance: SODIUM BICARBONATE
     Dosage: 4 GRAM, QD
     Route: 065
  55. HYDROCORTISONE. [Concomitant]
     Active Substance: HYDROCORTISONE
     Dosage: 20 MILLIGRAM
     Route: 065
  56. HYDROCORTISONE. [Concomitant]
     Active Substance: HYDROCORTISONE
     Dosage: 40 MG IN MORNING, 20 MG IN NOON
     Route: 065
  57. BORTEZOMIB. [Suspect]
     Active Substance: BORTEZOMIB
     Indication: PLASMA CELL MYELOMA
     Dosage: UNK
     Route: 065
  58. IXAZOMIB [Suspect]
     Active Substance: IXAZOMIB
     Dosage: UNK
     Route: 065
  59. GABAPENTIN. [Concomitant]
     Active Substance: GABAPENTIN
     Indication: PRODUCT USED FOR UNKNOWN INDICATION
     Dosage: UNK
  60. BICARBONATE [Concomitant]
     Active Substance: SODIUM BICARBONATE
     Dosage: 27 MILLIGRAM, QD (9 MG, TID)
  61. BICARBONATE [Concomitant]
     Active Substance: SODIUM BICARBONATE
     Dosage: 3 MILLIGRAM, QD (1 MG, TID)
  62. APIDRA [Concomitant]
     Active Substance: INSULIN GLULISINE
     Indication: PRODUCT USED FOR UNKNOWN INDICATION
     Dosage: 90 INTERNATIONAL UNIT, QD (30 IU, TID  (IN THE MORNING, AT NOON AND NIGHT))
     Route: 058
  63. HYDROCORTISONE. [Concomitant]
     Active Substance: HYDROCORTISONE
     Dosage: 20 MILLIGRAM, QD 10 MG, BID (10 MG, 2-1-0)
     Route: 065
  64. SODIUM BICARBONATE. [Concomitant]
     Active Substance: SODIUM BICARBONATE
     Indication: PRODUCT USED FOR UNKNOWN INDICATION
     Dosage: 3 GRAM, QD 1 G, TID (1 G, X 3/DAY)
     Route: 065
  65. SODIUM BICARBONATE. [Concomitant]
     Active Substance: SODIUM BICARBONATE
     Dosage: 4 GRAM, QD (4 G, QD)
     Route: 065
  66. FUROSEMIDE. [Concomitant]
     Active Substance: FUROSEMIDE
     Dosage: 500 OT, 1/4-0-0
     Route: 065
  67. BINOCRIT [Concomitant]
     Active Substance: ERYTHROPOIETIN
     Indication: PRODUCT USED FOR UNKNOWN INDICATION
     Dosage: 1 DOSAGE FORM, QW (1 DF, WEEKLY)
  68. CARFILZOMIB [Suspect]
     Active Substance: CARFILZOMIB
     Dosage: 27 MILLIGRAM/SQ. METER
     Route: 065
  69. REVLIMID [Suspect]
     Active Substance: LENALIDOMIDE
     Indication: PLASMA CELL MYELOMA
     Dosage: 15 MILLIGRAM
     Route: 065
     Dates: start: 20180411
  70. REVLIMID [Suspect]
     Active Substance: LENALIDOMIDE
     Dosage: 15 MILLIGRAM
     Route: 065
     Dates: start: 20180330
  71. REVLIMID [Suspect]
     Active Substance: LENALIDOMIDE
     Dosage: 10 MILLIGRAM
     Route: 065
     Dates: start: 20180807, end: 20181227
  72. SODIUM HYDROGEN CARBONATE [Concomitant]
     Active Substance: SODIUM BICARBONATE
     Dosage: 4 GRAM, QD
     Route: 065
  73. TAVANIC [Concomitant]
     Active Substance: LEVOFLOXACIN
     Dosage: 500 MG, IN THE MORNING AND AT NIGHT
     Route: 065
  74. AMLOR [Concomitant]
     Active Substance: AMLODIPINE BESYLATE
     Dosage: 5 MG, QD (IN THE MORNING)
     Route: 065
  75. HYDROCORTISONE. [Concomitant]
     Active Substance: HYDROCORTISONE
     Indication: PRODUCT USED FOR UNKNOWN INDICATION
     Dosage: 25 MG, Q6H
     Route: 042
     Dates: start: 201707
  76. CODEINE PHOSPHATE W/PARACETAMOL [Concomitant]
     Active Substance: ACETAMINOPHEN\CODEINE PHOSPHATE
     Indication: PRODUCT USED FOR UNKNOWN INDICATION
     Dosage: UNK

REACTIONS (24)
  - Pleural effusion [Recovering/Resolving]
  - Respiratory failure [Unknown]
  - Pericarditis [Recovered/Resolved]
  - Plasma cell myeloma [Fatal]
  - Acute kidney injury [Unknown]
  - Thrombotic microangiopathy [Recovered/Resolved]
  - Pain in extremity [Unknown]
  - Arthralgia [Unknown]
  - Haemoptysis [Recovering/Resolving]
  - Diarrhoea [Recovering/Resolving]
  - Klebsiella infection [Recovering/Resolving]
  - Escherichia infection [Unknown]
  - Spinal pain [Unknown]
  - Tremor [Recovered/Resolved]
  - Morganella infection [Recovered/Resolved]
  - Dyspnoea exertional [Recovered/Resolved]
  - Cough [Recovered/Resolved]
  - Septic shock [Unknown]
  - Bronchial haemorrhage [Recovering/Resolving]
  - Respiratory distress [Recovered/Resolved]
  - Therapeutic response decreased [Unknown]
  - Pancytopenia [Recovering/Resolving]
  - Oedema peripheral [Not Recovered/Not Resolved]
  - Cytopenia [Recovered/Resolved]

NARRATIVE: CASE EVENT DATE: 2016
